FAERS Safety Report 7825551-9 (Version None)
Quarter: 2011Q4

REPORT INFORMATION
  Report Type: 
  Country: None (occurrence: None)
  Receive Date: 20111019
  Receipt Date: 20111014
  Transmission Date: 20120403
  Serious: Yes (Hospitalization)
  Sender: FDA-Public Use
  Company Number: US-CEPHALON-2011005394

PATIENT
  Sex: Male
  Weight: 72 kg

DRUGS (4)
  1. BENDAMUSTINE HCL [Suspect]
     Indication: NON-HODGKIN'S LYMPHOMA
     Route: 041
     Dates: start: 20110503
  2. RITUXAN [Suspect]
     Indication: NON-HODGKIN'S LYMPHOMA
     Route: 042
     Dates: start: 20110503
  3. RITUXAN [Suspect]
     Route: 042
     Dates: start: 20110927, end: 20110927
  4. BENDAMUSTINE HCL [Suspect]
     Route: 041
     Dates: start: 20110927, end: 20110928

REACTIONS (1)
  - PNEUMONITIS [None]
